FAERS Safety Report 24113168 (Version 1)
Quarter: 2024Q3

REPORT INFORMATION
  Report Type: Spontaneous
  Country: US (occurrence: US)
  Receive Date: 20240719
  Receipt Date: 20240719
  Transmission Date: 20241017
  Serious: Yes (Other)
  Sender: EXELIXIS
  Company Number: US-EXELIXIS-CABO-24079418

PATIENT
  Age: 63 Year
  Sex: Male

DRUGS (3)
  1. COMETRIQ [Suspect]
     Active Substance: CABOZANTINIB S-MALATE
     Indication: Medullary thyroid cancer
     Dosage: UNK
     Dates: start: 2015
  2. COMETRIQ [Suspect]
     Active Substance: CABOZANTINIB S-MALATE
     Dosage: UNK (DOSE DECREASED)
  3. LENVIMA [Suspect]
     Active Substance: LENVATINIB
     Indication: Medullary thyroid cancer
     Dosage: UNK

REACTIONS (5)
  - Renal failure [Unknown]
  - Pain in extremity [Unknown]
  - Diarrhoea [Unknown]
  - Adverse event [Unknown]
  - Hair colour changes [Unknown]
